FAERS Safety Report 24246722 (Version 5)
Quarter: 2024Q4

REPORT INFORMATION
  Report Type: Spontaneous
  Country: SV (occurrence: SV)
  Receive Date: 20240826
  Receipt Date: 20241216
  Transmission Date: 20250115
  Serious: Yes (Death)
  Sender: NOVARTIS
  Company Number: SV-002147023-NVSC2024SV171277

PATIENT
  Age: 10 Year
  Sex: Female
  Weight: 49 kg

DRUGS (2)
  1. GLIVEC [Suspect]
     Active Substance: IMATINIB MESYLATE
     Indication: B-cell type acute leukaemia
     Dosage: 400 MG, (1 X  400MG)
     Route: 065
     Dates: start: 20240426
  2. GLIVEC [Suspect]
     Active Substance: IMATINIB MESYLATE
     Dosage: UNK
     Route: 065
     Dates: start: 20240809

REACTIONS (3)
  - B-cell type acute leukaemia [Fatal]
  - Malignant neoplasm progression [Fatal]
  - Haemorrhage [Fatal]

NARRATIVE: CASE EVENT DATE: 20240809
